FAERS Safety Report 24035182 (Version 1)
Quarter: 2024Q3

REPORT INFORMATION
  Report Type: Spontaneous
  Country: PT (occurrence: PT)
  Receive Date: 20240701
  Receipt Date: 20240701
  Transmission Date: 20241016
  Serious: Yes (Hospitalization, Other)
  Sender: MYLAN
  Company Number: PT-BRISTOL-MYERS SQUIBB COMPANY-2024-095683

PATIENT
  Age: 74 Year
  Sex: Male

DRUGS (11)
  1. AZACITIDINE [Suspect]
     Active Substance: AZACITIDINE
     Indication: VEXAS syndrome
     Dosage: 75 MILLIGRAM/SQ. METER, QD, ADMINISTERED FOR 5 + 2 DAYS (28-DAY CYCLES).
     Route: 065
     Dates: start: 202306
  2. PREDNISOLONE [Suspect]
     Active Substance: PREDNISOLONE
     Indication: Sacroiliitis
     Dosage: 80 MILLIGRAM, QD, 1 MG/KG/DAY (80 MG)
     Route: 065
  3. PREDNISOLONE [Suspect]
     Active Substance: PREDNISOLONE
     Indication: VEXAS syndrome
     Dosage: 12.5 MILLIGRAM, QD
     Route: 065
  4. PREDNISOLONE [Suspect]
     Active Substance: PREDNISOLONE
     Dosage: UNK UNK, QD, TAPERING BELOW 30 MG OF PREDNISOLONE WAS NOT POSSIBLE
     Route: 065
  5. PREDNISOLONE [Suspect]
     Active Substance: PREDNISOLONE
     Dosage: 30 MILLIGRAM, QD, 1 MG/KG/DAY (80 MG)
     Route: 065
  6. PREDNISOLONE [Suspect]
     Active Substance: PREDNISOLONE
     Dosage: 1 MILLIGRAM/KILOGRAM, QD
     Route: 065
  7. PREDNISOLONE [Suspect]
     Active Substance: PREDNISOLONE
     Dosage: 15 MILLIGRAM, QD, DAILY FOR 3 WEEKS
     Route: 065
     Dates: start: 202201
  8. PREDNISOLONE [Suspect]
     Active Substance: PREDNISOLONE
     Dosage: 20 MILLIGRAM, QD
     Route: 065
     Dates: start: 202204
  9. PREDNISOLONE [Suspect]
     Active Substance: PREDNISOLONE
     Dosage: 7.5 MILLIGRAM, QD
     Route: 065
     Dates: start: 202204
  10. PREDNISOLONE [Suspect]
     Active Substance: PREDNISOLONE
     Dosage: 40 MILLIGRAM, QD, TAPERING BELOW 30 MG OF PREDNISOLONE WAS NOT POSSIBLE
     Route: 065
     Dates: start: 202206
  11. PREDNISOLONE [Suspect]
     Active Substance: PREDNISOLONE
     Dosage: 5 MILLIGRAM, QD
     Route: 065
     Dates: start: 202403

REACTIONS (2)
  - Pneumonia [Unknown]
  - Off label use [Unknown]

NARRATIVE: CASE EVENT DATE: 20231201
